FAERS Safety Report 14968349 (Version 1)
Quarter: 2018Q2

REPORT INFORMATION
  Report Type: Report from Study
  Country: UG (occurrence: UG)
  Receive Date: 20180604
  Receipt Date: 20180604
  Transmission Date: 20180711
  Serious: Yes (Death, Other)
  Sender: FDA-Public Use
  Company Number: UG-VIIV HEALTHCARE LIMITED-UG2018GSK097077

PATIENT

DRUGS (2)
  1. DOLUTEGRAVIR [Suspect]
     Active Substance: DOLUTEGRAVIR
     Indication: HIV INFECTION
     Dosage: UNK
     Dates: start: 20180328
  2. LAMIVUDINE + TENOFOVIR [Concomitant]
     Active Substance: LAMIVUDINE\TENOFOVIR
     Dosage: UNK
     Dates: start: 20180328

REACTIONS (3)
  - Foetal distress syndrome [Unknown]
  - Asphyxia [Unknown]
  - Foetal death [Fatal]

NARRATIVE: CASE EVENT DATE: 20180519
